FAERS Safety Report 13724555 (Version 1)
Quarter: 2017Q3

REPORT INFORMATION
  Report Type: Spontaneous
  Country: US (occurrence: US)
  Receive Date: 20170706
  Receipt Date: 20170706
  Transmission Date: 20171127
  Serious: Yes (Other)
  Sender: FDA-Public Use
  Company Number: US-PFIZER INC-2017288063

PATIENT
  Age: 65 Year
  Sex: Male
  Weight: 72.56 kg

DRUGS (5)
  1. GABAPENTIN. [Suspect]
     Active Substance: GABAPENTIN
     Indication: SPINAL CORD DISORDER
  2. TYLENOL [Concomitant]
     Active Substance: ACETAMINOPHEN
     Indication: PAIN
     Dosage: 975 MG, 1X/DAY(975MG AT NIGHT BY MOUTH)
     Route: 048
  3. GABAPENTIN. [Suspect]
     Active Substance: GABAPENTIN
     Indication: NEURALGIA
  4. GABAPENTIN. [Suspect]
     Active Substance: GABAPENTIN
     Indication: NEUROPATHY PERIPHERAL
     Dosage: 8 ML, 1X/DAY (AT BED TIME)
     Route: 048
     Dates: start: 2012
  5. MYLANTA [Concomitant]
     Active Substance: ALUMINUM HYDROXIDE\DIMETHICONE\MAGNESIUM HYDROXIDE
     Indication: ANTACID THERAPY
     Dosage: 3 DF, 2X/DAY (ABOUT 3 TABLESPOONS TWICE A DAY BY MOUTH)
     Route: 048

REACTIONS (5)
  - Product storage error [Unknown]
  - Dyspepsia [Not Recovered/Not Resolved]
  - Product use in unapproved indication [Unknown]
  - Gastrointestinal disorder [Not Recovered/Not Resolved]
  - Gastrooesophageal reflux disease [Not Recovered/Not Resolved]

NARRATIVE: CASE EVENT DATE: 2012
